FAERS Safety Report 8665955 (Version 2)
Quarter: 2012Q4

REPORT INFORMATION
  Report Type: 
  Country: NL (occurrence: NL)
  Receive Date: 20120716
  Receipt Date: 20120907
  Transmission Date: 20130627
  Serious: Yes (Other)
  Sender: FDA-Public Use
  Company Number: PHHY2012NL060282

PATIENT
  Sex: Male

DRUGS (3)
  1. GLIVEC [Suspect]
     Indication: GASTROINTESTINAL STROMAL TUMOUR
     Dosage: UNK
     Dates: start: 2004
  2. GLIVEC [Suspect]
     Dosage: 400 mg, daily
  3. GLIVEC [Suspect]
     Dosage: 300 mg, UNK

REACTIONS (3)
  - Deafness [Unknown]
  - Gastrointestinal stromal tumour [Unknown]
  - Neoplasm recurrence [Unknown]
